FAERS Safety Report 25704682 (Version 1)
Quarter: 2025Q3

REPORT INFORMATION
  Report Type: Spontaneous
  Country: US (occurrence: US)
  Receive Date: 20250820
  Receipt Date: 20250820
  Transmission Date: 20251021
  Serious: Yes (Hospitalization, Other)
  Sender: ZYDUS PHARM
  Company Number: US-CADILA HEALTHCARE LIMITED-US-ZYDUS-127313

PATIENT

DRUGS (8)
  1. APIXABAN [Suspect]
     Active Substance: APIXABAN
     Indication: Thrombosis prophylaxis
     Route: 065
  2. ENOXAPARIN SODIUM [Suspect]
     Active Substance: ENOXAPARIN SODIUM
     Indication: Anticoagulant therapy
     Route: 065
  3. REMDESIVIR [Concomitant]
     Active Substance: REMDESIVIR
     Indication: COVID-19
     Route: 065
  4. CASIRIVIMAB [Concomitant]
     Active Substance: CASIRIVIMAB
     Indication: COVID-19
     Route: 065
  5. IMDEVIMAB [Concomitant]
     Active Substance: IMDEVIMAB
     Indication: COVID-19
     Route: 065
  6. TACROLIMUS [Concomitant]
     Active Substance: TACROLIMUS
     Indication: Immunosuppressant drug therapy
     Route: 065
  7. MYCOPHENOLATE MOFETIL [Concomitant]
     Active Substance: MYCOPHENOLATE MOFETIL
     Indication: Immunosuppressant drug therapy
     Route: 065
  8. PREDNISONE [Concomitant]
     Active Substance: PREDNISONE
     Indication: Immunosuppressant drug therapy
     Route: 065

REACTIONS (3)
  - Hypovolaemic shock [Unknown]
  - Shock haemorrhagic [Unknown]
  - Abdominal wall haematoma [Unknown]
